FAERS Safety Report 20736753 (Version 1)
Quarter: 2022Q2

REPORT INFORMATION
  Report Type: Spontaneous
  Country: US (occurrence: US)
  Receive Date: 20220421
  Receipt Date: 20220421
  Transmission Date: 20220720
  Serious: No
  Sender: FDA-Public Use
  Company Number: US-Kiniksa Pharmaceuticals Ltd.-2021KPU000690

PATIENT
  Sex: Female

DRUGS (2)
  1. ARCALYST [Suspect]
     Active Substance: RILONACEPT
     Indication: Pericarditis
     Route: 058
     Dates: start: 20210824, end: 20211005
  2. TRAMADOL [Concomitant]
     Active Substance: TRAMADOL

REACTIONS (8)
  - Pain in extremity [Unknown]
  - Arthralgia [Unknown]
  - Pain in extremity [Unknown]
  - Joint swelling [Unknown]
  - Hypoaesthesia [Unknown]
  - Pain in extremity [Unknown]
  - Peripheral swelling [Unknown]
  - Peripheral swelling [Unknown]
